FAERS Safety Report 9762973 (Version 1)
Quarter: 2013Q4

REPORT INFORMATION
  Report Type: Spontaneous
  Country: US (occurrence: US)
  Receive Date: 20131216
  Receipt Date: 20131216
  Transmission Date: 20140711
  Serious: No
  Sender: FDA-Public Use
  Company Number: US-BIOGENIDEC-2013BI103553

PATIENT
  Age: 63 Year
  Sex: Female

DRUGS (10)
  1. TECFIDERA [Suspect]
     Indication: MULTIPLE SCLEROSIS
     Route: 048
     Dates: start: 20131016, end: 20131024
  2. TECFIDERA [Suspect]
     Indication: MULTIPLE SCLEROSIS
     Route: 048
  3. CYMBALTA [Concomitant]
  4. ZOLOFT [Concomitant]
  5. LYRICA [Concomitant]
  6. SYNTHROID [Concomitant]
  7. GABAPENTIN [Concomitant]
  8. OXYBUTYNIN CL ER [Concomitant]
  9. VITAMIN D3 [Concomitant]
  10. PROAIR HFA INHALER [Concomitant]

REACTIONS (8)
  - Faecal incontinence [Unknown]
  - Urinary incontinence [Recovered/Resolved]
  - Nocturia [Unknown]
  - Wheezing [Recovered/Resolved]
  - Gastric disorder [Unknown]
  - Defaecation urgency [Recovered/Resolved]
  - Flushing [Recovered/Resolved]
  - Abdominal pain [Recovered/Resolved]
